FAERS Safety Report 17093644 (Version 2)
Quarter: 2019Q4

REPORT INFORMATION
  Report Type: Spontaneous
  Country: PT (occurrence: PT)
  Receive Date: 20191129
  Receipt Date: 20191219
  Transmission Date: 20200122
  Serious: Yes (Death, Hospitalization, Other)
  Sender: FDA-Public Use
  Company Number: PT-GALDERMA-PT19072806

PATIENT
  Age: 73 Year
  Sex: Female

DRUGS (3)
  1. METRONIDAZOLE. [Suspect]
     Active Substance: METRONIDAZOLE
     Indication: PRODUCT USED FOR UNKNOWN INDICATION
     Route: 065
  2. GENTAMICIN. [Concomitant]
     Active Substance: GENTAMICIN
     Indication: PRODUCT USED FOR UNKNOWN INDICATION
     Route: 065
  3. AMOXICILLIN+CLAVULANIC ACID [Concomitant]
     Active Substance: AMOXICILLIN\CLAVULANIC ACID
     Indication: PRODUCT USED FOR UNKNOWN INDICATION
     Route: 065

REACTIONS (2)
  - Septic shock [Fatal]
  - Empyema [Fatal]
